FAERS Safety Report 6172083-2 (Version None)
Quarter: 2009Q2

REPORT INFORMATION
  Report Type: 
  Country: None (occurrence: None)
  Receive Date: 20090429
  Receipt Date: 20090422
  Transmission Date: 20091009
  Serious: Yes (Hospitalization)
  Sender: FDA-Public Use
  Company Number: US-ELI_LILLY_AND_COMPANY-US200904005149

PATIENT
  Sex: Female

DRUGS (10)
  1. HUMALOG [Suspect]
     Indication: DIABETES MELLITUS
     Dosage: 30 U, 3/D
     Dates: start: 20080901
  2. HUMALOG [Suspect]
  3. LANTUS [Concomitant]
  4. LISINOPRIL HYDROCHLORTHIAZID [Concomitant]
  5. LISINOPRIL [Concomitant]
  6. ASPIRIN [Concomitant]
  7. STOOL SOFTENER [Concomitant]
     Indication: CONSTIPATION
  8. CARISOPRODOL [Concomitant]
     Indication: PAIN MANAGEMENT
  9. ACETAMINOPHEN AND HYDROCODONE BITARTRATE [Concomitant]
     Indication: BACK PAIN
  10. CORTISONE [Concomitant]
     Indication: BACK PAIN

REACTIONS (8)
  - ASTHENIA [None]
  - BACK DISORDER [None]
  - BACK PAIN [None]
  - BLOOD GLUCOSE INCREASED [None]
  - CONSTIPATION [None]
  - DRUG DISPENSING ERROR [None]
  - PAIN IN EXTREMITY [None]
  - PNEUMONIA [None]
